FAERS Safety Report 12289729 (Version 1)
Quarter: 2016Q2

REPORT INFORMATION
  Report Type: Spontaneous
  Country: IT (occurrence: IT)
  Receive Date: 20160421
  Receipt Date: 20160421
  Transmission Date: 20160815
  Serious: Yes (Death, Other)
  Sender: FDA-Public Use
  Company Number: IT-HOSPIRA-3248148

PATIENT
  Age: 64 Year
  Sex: Female

DRUGS (9)
  1. FLUOROURACIL. [Suspect]
     Active Substance: FLUOROURACIL
     Indication: COLON NEOPLASM
     Route: 042
     Dates: start: 20160323, end: 20160325
  2. AFLIBERCEPT [Suspect]
     Active Substance: AFLIBERCEPT
     Indication: COLON NEOPLASM
     Route: 042
     Dates: start: 20160323, end: 20160323
  3. IRINOTECAN HYDROCHLORIDE. [Suspect]
     Active Substance: IRINOTECAN HYDROCHLORIDE
     Indication: COLON NEOPLASM
     Route: 042
     Dates: start: 20160323, end: 20160323
  4. ATROPINE. [Concomitant]
     Active Substance: ATROPINE
     Indication: PRODUCT USED FOR UNKNOWN INDICATION
     Route: 042
     Dates: start: 20160323, end: 20160323
  5. FLUOROURACIL. [Suspect]
     Active Substance: FLUOROURACIL
     Indication: COLON NEOPLASM
     Route: 042
     Dates: start: 20160323, end: 20160325
  6. DEXAMETHASONE. [Concomitant]
     Active Substance: DEXAMETHASONE
     Indication: PRODUCT USED FOR UNKNOWN INDICATION
     Route: 042
     Dates: start: 20160323, end: 20160323
  7. PALONOSETRON [Concomitant]
     Active Substance: PALONOSETRON
     Indication: PRODUCT USED FOR UNKNOWN INDICATION
     Route: 042
     Dates: start: 20160323, end: 20160323
  8. FOLINIC ACID [Suspect]
     Active Substance: LEUCOVORIN
     Indication: COLON NEOPLASM
     Route: 042
     Dates: start: 20160323, end: 20160323
  9. IRINOTECAN HYDROCHLORIDE. [Suspect]
     Active Substance: IRINOTECAN HYDROCHLORIDE
     Indication: COLON NEOPLASM
     Route: 042
     Dates: start: 20160323, end: 20160323

REACTIONS (5)
  - Thrombocytopenia [Unknown]
  - Bacterial test positive [Unknown]
  - Haemoglobin decreased [Unknown]
  - Febrile neutropenia [Fatal]
  - Leukopenia [Unknown]

NARRATIVE: CASE EVENT DATE: 20160403
